FAERS Safety Report 7545540-1 (Version None)
Quarter: 2011Q2

REPORT INFORMATION
  Report Type: 
  Country: None (occurrence: None)
  Receive Date: 20110613
  Receipt Date: 20110613
  Transmission Date: 20111010
  Serious: Yes (Life-Threatening)
  Sender: FDA-Public Use
  Company Number: None

PATIENT
  Age: 62 Year
  Sex: Male
  Weight: 81.8 kg

DRUGS (4)
  1. METHADONE HCL [Suspect]
     Indication: NAUSEA
     Dosage: 165 MG EVERY DAY PO; 10 MG IV
     Route: 048
     Dates: start: 20110407, end: 20110408
  2. METHADONE HCL [Suspect]
     Indication: DRUG ABUSE
     Dosage: 165 MG EVERY DAY PO; 10 MG IV
     Route: 048
     Dates: start: 20110407, end: 20110408
  3. METHADONE HCL [Suspect]
     Indication: NAUSEA
     Dosage: 165 MG EVERY DAY PO; 10 MG IV
     Route: 048
     Dates: start: 19970815, end: 20110408
  4. METHADONE HCL [Suspect]
     Indication: DRUG ABUSE
     Dosage: 165 MG EVERY DAY PO; 10 MG IV
     Route: 048
     Dates: start: 19970815, end: 20110408

REACTIONS (2)
  - TORSADE DE POINTES [None]
  - ELECTROCARDIOGRAM QT PROLONGED [None]
